FAERS Safety Report 24296978 (Version 1)
Quarter: 2024Q3

REPORT INFORMATION
  Report Type: Spontaneous
  Country: US (occurrence: US)
  Receive Date: 20240909
  Receipt Date: 20240909
  Transmission Date: 20241017
  Serious: Yes (Death, Other)
  Sender: AMGEN
  Company Number: US-AMGEN-USASP2024178084

PATIENT

DRUGS (3)
  1. PREDNISONE [Suspect]
     Active Substance: PREDNISONE
     Indication: Hormone-refractory prostate cancer
     Dosage: 5 MILLIGRAM, BID
     Route: 048
  2. PEMBROLIZUMAB [Suspect]
     Active Substance: PEMBROLIZUMAB
     Indication: Hormone-refractory prostate cancer
     Dosage: 200 MILLIGRAM, Q3WK
     Route: 042
  3. DOCETAXEL [Suspect]
     Active Substance: DOCETAXEL\DOCETAXEL ANHYDROUS
     Indication: Hormone-refractory prostate cancer
     Dosage: 75 MILLIGRAM/SQ. METER, Q3WK
     Route: 042

REACTIONS (42)
  - Neuropathy peripheral [Unknown]
  - Febrile neutropenia [Unknown]
  - Hyperthyroidism [Unknown]
  - Neutropenia [Unknown]
  - Pneumonitis [Unknown]
  - Diarrhoea [Unknown]
  - Fatigue [Unknown]
  - Asthenia [Unknown]
  - Arthralgia [Unknown]
  - Rash maculo-papular [Unknown]
  - Neutrophil count decreased [Unknown]
  - Hormone-refractory prostate cancer [Unknown]
  - Cerebrovascular accident [Fatal]
  - Malignant neoplasm progression [Fatal]
  - Pneumonia [Fatal]
  - Lymphocyte count decreased [Unknown]
  - Dysgeusia [Unknown]
  - Anaemia [Unknown]
  - Decreased appetite [Unknown]
  - Oedema peripheral [Unknown]
  - Mucosal inflammation [Unknown]
  - Dyspepsia [Unknown]
  - Dyspnoea [Unknown]
  - Peripheral sensory neuropathy [Unknown]
  - Nail discolouration [Unknown]
  - Nail disorder [Unknown]
  - Pruritus [Unknown]
  - Pyrexia [Unknown]
  - Constipation [Unknown]
  - Cough [Unknown]
  - Infusion related reaction [Unknown]
  - Pain in extremity [Unknown]
  - Dyspnoea exertional [Unknown]
  - Flushing [Unknown]
  - Muscle spasms [Unknown]
  - Myalgia [Unknown]
  - Skin reaction [Unknown]
  - Alopecia [Unknown]
  - Nausea [Unknown]
  - Paraesthesia [Unknown]
  - Dry skin [Unknown]
  - Insomnia [Unknown]
